FAERS Safety Report 23036204 (Version 1)
Quarter: 2023Q4

REPORT INFORMATION
  Report Type: Report from Study
  Country: US (occurrence: US)
  Receive Date: 20231006
  Receipt Date: 20231006
  Transmission Date: 20240109
  Serious: Yes (Hospitalization, Other)
  Sender: FDA-Public Use
  Company Number: US-GILEAD-2023-0646079

PATIENT
  Age: 22 Year
  Sex: Male

DRUGS (1)
  1. AZTREONAM LYSINE [Suspect]
     Active Substance: AZTREONAM LYSINE
     Indication: Cystic fibrosis lung
     Dosage: 75 MG, TID INHALE FOR 28 DAYS EVERY OTHER MONTH (WITH AL TERA HANDSET)
     Route: 055
     Dates: start: 20230808

REACTIONS (2)
  - Cystic fibrosis [Unknown]
  - Intentional dose omission [Unknown]
